FAERS Safety Report 8687204 (Version 3)
Quarter: 2012Q4

REPORT INFORMATION
  Report Type: 
  Country: US (occurrence: US)
  Receive Date: 20120727
  Receipt Date: 20120831
  Transmission Date: 20130627
  Serious: Yes (Hospitalization, Other)
  Sender: FDA-Public Use
  Company Number: PHEH2012US014624

PATIENT
  Sex: Female

DRUGS (3)
  1. AREDIA [Suspect]
  2. PREMARIN [Concomitant]
     Indication: HOT FLUSH
  3. TRICOR [Concomitant]

REACTIONS (16)
  - Urinary incontinence [Unknown]
  - Pelvic prolapse [Unknown]
  - Arthritis [Unknown]
  - Hepatitis [Unknown]
  - Urethral stenosis [Unknown]
  - Cystocele [Unknown]
  - Vulval haematoma [Unknown]
  - Haematuria [Unknown]
  - Pelvic pain [Unknown]
  - Vaginal haemorrhage [Unknown]
  - Rectocele [Unknown]
  - Hot flush [Unknown]
  - Breast mass [Unknown]
  - Insomnia [Unknown]
  - Stress urinary incontinence [Unknown]
  - Nocturia [Unknown]
